FAERS Safety Report 5738749-0 (Version None)
Quarter: 2008Q2

REPORT INFORMATION
  Report Type: 
  Country: None (occurrence: None)
  Receive Date: 20080512
  Receipt Date: 20080512
  Transmission Date: 20081010
  Serious: No
  Sender: FDA-Public Use
  Company Number: None

PATIENT
  Age: 50 Year
  Sex: Female
  Weight: 62.5964 kg

DRUGS (2)
  1. CREST PRO HEALTH RINSE PROCTOR + GAMBLE - CREST [Suspect]
     Indication: DENTAL CARE
     Dosage: OUNCE TWICE DAILY DENTAL
     Route: 004
     Dates: start: 20070501, end: 20071001
  2. CREST PRO HEALTH TOOTHPASTE  PROCTOR + GAMBLE - CREST [Suspect]
     Indication: DENTAL CARE
     Dosage: 1/4 OUNCE TWICE DAILY DENTAL
     Route: 004
     Dates: start: 20070501, end: 20071001

REACTIONS (2)
  - ORAL DISCOMFORT [None]
  - TOOTH DISCOLOURATION [None]
